FAERS Safety Report 8657715 (Version 2)
Quarter: 2012Q4

REPORT INFORMATION
  Report Type: 
  Country: FR (occurrence: FR)
  Receive Date: 20120710
  Receipt Date: 20120919
  Transmission Date: 20130627
  Serious: Yes (Life-Threatening, Hospitalization, Other)
  Sender: FDA-Public Use
  Company Number: FR-ASTELLAS-2012EU004788

PATIENT
  Age: 62 Year
  Sex: Male
  Weight: 87 kg

DRUGS (8)
  1. PROGRAF [Suspect]
     Indication: RENAL TRANSPLANT
     Dosage: 4 mg, bid
     Route: 048
     Dates: start: 20120223, end: 20120701
  2. PROGRAF [Suspect]
     Dosage: 4 mg, bid
     Route: 048
     Dates: start: 20120704
  3. CELLCEPT                           /01275102/ [Concomitant]
     Indication: PROPHYLAXIS AGAINST TRANSPLANT REJECTION
     Dosage: 1 g, Unknown/D
     Route: 048
     Dates: start: 20120223, end: 20120701
  4. CORTANCYL [Concomitant]
     Indication: PROPHYLAXIS AGAINST TRANSPLANT REJECTION
     Dosage: 7.5 mg, Unknown/D
     Route: 048
     Dates: start: 20120223, end: 20120701
  5. AMLOR [Concomitant]
     Indication: HYPERTENSION
     Dosage: 10 mg, Unknown/D
     Route: 048
  6. EUPRESSYL                          /00631801/ [Concomitant]
     Indication: HYPERTENSION
     Dosage: 180 mg, Unknown/D
     Route: 048
  7. TEMERIT [Concomitant]
     Indication: HYPERTENSION
     Dosage: 2.5 mg, Unknown/D
     Route: 048
  8. INSULIN [Concomitant]
     Indication: TYPE 1 DIABETES MELLITUS
     Dosage: 40 IU, Unknown/D
     Route: 058

REACTIONS (1)
  - Diaphragmatic hernia, obstructive [Recovered/Resolved]
